FAERS Safety Report 5543197-2 (Version None)
Quarter: 2007Q4

REPORT INFORMATION
  Report Type: 
  Country: None (occurrence: None)
  Receive Date: 20071210
  Receipt Date: 20070111
  Transmission Date: 20080405
  Serious: No
  Sender: FDA-Public Use
  Company Number: US-AMGEN-KDL206626

PATIENT
  Sex: Female

DRUGS (3)
  1. ENBREL [Suspect]
     Indication: RHEUMATOID ARTHRITIS
     Route: 058
     Dates: start: 20061206
  2. ENBREL [Suspect]
     Indication: ANKYLOSING SPONDYLITIS
  3. METHOTREXATE [Concomitant]

REACTIONS (6)
  - BRONCHITIS [None]
  - ERYTHEMA [None]
  - FEELING HOT [None]
  - LOCAL SWELLING [None]
  - NODULE [None]
  - PRURITUS [None]
